FAERS Safety Report 8458192-3 (Version None)
Quarter: 2012Q2

REPORT INFORMATION
  Report Type: 
  Country: None (occurrence: None)
  Receive Date: 20120323
  Receipt Date: 20111020
  Transmission Date: 20120825
  Serious: Yes (Hospitalization, Other)
  Sender: FDA-Public Use
  Company Number: 163-21880-11102801

PATIENT
  Age: 73 Year
  Sex: Female

DRUGS (9)
  1. REQUIP [Concomitant]
  2. AREDIA [Concomitant]
  3. ALLOPURINOL [Concomitant]
  4. TOPROL-XL [Concomitant]
  5. LACTULOSE [Concomitant]
  6. CYCLOBENZAPRINE [Concomitant]
  7. LORAZEPAM [Concomitant]
  8. REVLIMID [Suspect]
     Indication: MULTIPLE MYELOMA
     Dosage: 10 MG, QOD, PO
     Route: 048
     Dates: start: 20110729
  9. DEXAMETHASONE [Concomitant]

REACTIONS (4)
  - OROPHARYNGEAL PAIN [None]
  - RED BLOOD CELL COUNT DECREASED [None]
  - WHITE BLOOD CELL COUNT DECREASED [None]
  - PNEUMONIA [None]
